FAERS Safety Report 6590894-6 (Version None)
Quarter: 2010Q1

REPORT INFORMATION
  Report Type: 
  Country: None (occurrence: None)
  Receive Date: 20100219
  Receipt Date: 20100211
  Transmission Date: 20100710
  Serious: Yes (Other)
  Sender: FDA-Public Use
  Company Number: US-JNJFOC-20061004184

PATIENT
  Sex: Female
  Weight: 95.62 kg

DRUGS (4)
  1. RISPERDAL [Suspect]
     Indication: HALLUCINATION, AUDITORY
     Route: 048
  2. RISPERDAL [Suspect]
     Indication: MANIA
     Route: 048
  3. RISPERDAL [Suspect]
     Indication: PSYCHOTIC DISORDER
     Route: 048
  4. REMERON [Interacting]
     Indication: INSOMNIA
     Route: 065

REACTIONS (5)
  - DIABETES MELLITUS [None]
  - DIABETIC COMA [None]
  - DIABETIC NEUROPATHY [None]
  - DRUG INTERACTION [None]
  - SOMNOLENCE [None]
